FAERS Safety Report 17679506 (Version 2)
Quarter: 2020Q2

REPORT INFORMATION
  Report Type: Spontaneous
  Country: DE (occurrence: DE)
  Receive Date: 20200417
  Receipt Date: 20200430
  Transmission Date: 20200714
  Serious: Yes (Congenital Anomaly, Other)
  Sender: FDA-Public Use
  Company Number: DE-MYLANLABS-2020M1038548

PATIENT
  Age: 1 Day
  Sex: Male
  Weight: 2.51 kg

DRUGS (7)
  1. FONDAPARINUX [Suspect]
     Active Substance: FONDAPARINUX
     Indication: FACTOR V LEIDEN MUTATION
     Dosage: 7.5 [MG/D (0-0-1)] (0.- 30.3. GESTATIONAL WEEK)
     Route: 064
  2. PROGESTERON [Concomitant]
     Active Substance: PROGESTERONE
     Dosage: UNK
     Route: 064
     Dates: start: 20181214, end: 20181230
  3. PRESINOL [Concomitant]
     Active Substance: METHYLDOPA
     Dosage: UNK
     Route: 064
     Dates: start: 20190119, end: 20190128
  4. ADALAT [Concomitant]
     Active Substance: NIFEDIPINE
     Dosage: ONE TABLET IN HOSPITAL. BLOOD PRESSURE DECREASE TO 90/40 MMHG
     Route: 064
  5. AMBROXOL [Concomitant]
     Active Substance: AMBROXOL
     Dosage: UNK
     Route: 064
  6. CLEXANE [Concomitant]
     Active Substance: ENOXAPARIN SODIUM
     Dosage: UNK
     Route: 064
  7. MAGNESIUM GLUTAMATE [Concomitant]
     Dosage: UNK
     Route: 064
     Dates: start: 20181129, end: 20190609

REACTIONS (6)
  - Premature baby [Unknown]
  - Ventricular septal defect [Not Recovered/Not Resolved]
  - Foetal exposure during pregnancy [Recovered/Resolved]
  - Atrial septal defect [Recovered/Resolved]
  - Neonatal respiratory distress syndrome [Recovered/Resolved]
  - Sepsis neonatal [Recovered/Resolved]

NARRATIVE: CASE EVENT DATE: 20190609
